FAERS Safety Report 8161639-3 (Version None)
Quarter: 2012Q1

REPORT INFORMATION
  Report Type: 
  Country: None (occurrence: None)
  Receive Date: 20120224
  Receipt Date: 20120222
  Transmission Date: 20120608
  Serious: Yes (Other)
  Sender: FDA-Public Use
  Company Number: JP-PFIZER INC-2012047193

PATIENT
  Age: 75 Year
  Sex: Female

DRUGS (4)
  1. BONOTEO [Suspect]
     Dosage: 50 MG, MONTHLY
     Route: 048
     Dates: start: 20111012, end: 20111116
  2. NORVASC [Concomitant]
     Route: 048
  3. LIPITOR [Suspect]
     Dosage: 5 MG, UNK
     Route: 048
  4. LEVOTHYROXINE SODIUM [Concomitant]
     Route: 048

REACTIONS (1)
  - HAEMORRHAGE SUBCUTANEOUS [None]
